FAERS Safety Report 9670875 (Version 2)
Quarter: 2013Q4

REPORT INFORMATION
  Report Type: Report from Study
  Country: DE (occurrence: DE)
  Receive Date: 20131106
  Receipt Date: 20131121
  Transmission Date: 20140711
  Serious: Yes (Life-Threatening, Hospitalization, Other)
  Sender: FDA-Public Use
  Company Number: PHHY2013DE125508

PATIENT
  Sex: Female
  Weight: 55 kg

DRUGS (7)
  1. AFINITOR [Suspect]
     Indication: BREAST CANCER METASTATIC
     Dosage: 5 MG, DAILY
     Route: 048
     Dates: start: 20130306, end: 20130912
  2. AFINITOR [Suspect]
     Dosage: 5 MG, BID
     Route: 048
     Dates: start: 20130912, end: 20131028
  3. AFINITOR [Suspect]
     Dosage: 10 MG, DAILY
     Route: 048
     Dates: start: 20130912, end: 20131028
  4. HERBALS [Interacting]
  5. BISOPROLOL [Concomitant]
     Indication: HYPERTENSION
  6. EXEMESTAN [Concomitant]
     Dosage: 5 MG, UNK
  7. AMLODIPIN//AMLODIPINE [Concomitant]
     Indication: HYPERTENSION

REACTIONS (11)
  - Electrolyte imbalance [Recovered/Resolved]
  - Cardiovascular disorder [Recovered/Resolved]
  - Loss of consciousness [Recovered/Resolved]
  - Psychotic disorder [Unknown]
  - Circulatory collapse [Recovered/Resolved]
  - Depression [Recovered/Resolved]
  - Suicidal ideation [Recovered/Resolved]
  - Drug interaction [Recovered/Resolved]
  - General physical health deterioration [Not Recovered/Not Resolved]
  - Asthenia [Not Recovered/Not Resolved]
  - Urinary tract infection [Recovered/Resolved]
